FAERS Safety Report 7825409-5 (Version None)
Quarter: 2011Q4

REPORT INFORMATION
  Report Type: 
  Country: None (occurrence: None)
  Receive Date: 20111018
  Receipt Date: 20110914
  Transmission Date: 20120403
  Serious: Yes (Disabling)
  Sender: FDA-Public Use
  Company Number: 200509281

PATIENT
  Age: 24 Month
  Sex: Female

DRUGS (7)
  1. OTRIVEN (XYLOMETAZOLINE HYDROCHLORIDE) [Concomitant]
  2. HAEMATE HS (FACTOR VIII (ANTIHAEMOPHILIC FACTOR)) [Suspect]
     Indication: VON WILLEBRAND'S DISEASE
     Dosage: 1000 IU INTRAVENOUS (NOT OTHERWISE SPECIFIED), 750 IU, INTRAVENOUS (NOT OTHERWISE SPECIFIED)
     Route: 042
     Dates: start: 20040726, end: 20040801
  3. HAEMATE HS (FACTOR VIII (ANTIHAEMOPHILIC FACTOR)) [Suspect]
     Indication: ADENOIDECTOMY
     Dosage: 1000 IU INTRAVENOUS (NOT OTHERWISE SPECIFIED), 750 IU, INTRAVENOUS (NOT OTHERWISE SPECIFIED)
     Route: 042
     Dates: start: 20040726, end: 20040801
  4. HAEMATE HS (FACTOR VIII (ANTIHAEMOPHILIC FACTOR)) [Suspect]
     Indication: VON WILLEBRAND'S DISEASE
     Dosage: 1000 IU INTRAVENOUS (NOT OTHERWISE SPECIFIED), 750 IU, INTRAVENOUS (NOT OTHERWISE SPECIFIED)
     Route: 042
     Dates: start: 20040723, end: 20040725
  5. HAEMATE HS (FACTOR VIII (ANTIHAEMOPHILIC FACTOR)) [Suspect]
     Indication: ADENOIDECTOMY
     Dosage: 1000 IU INTRAVENOUS (NOT OTHERWISE SPECIFIED), 750 IU, INTRAVENOUS (NOT OTHERWISE SPECIFIED)
     Route: 042
     Dates: start: 20040723, end: 20040725
  6. CYCLOKAPRON (TRANEXAMIC ACID) [Concomitant]
  7. HAEMATE HS (FACTOR VIII (ANTIHAEMOPHILIC FACTOR)) [Suspect]

REACTIONS (3)
  - HEPATITIS B CORE ANTIBODY POSITIVE [None]
  - HEPATITIS A ANTIBODY POSITIVE [None]
  - HEPATITIS B SURFACE ANTIBODY POSITIVE [None]
